FAERS Safety Report 10873165 (Version 1)
Quarter: 2015Q1

REPORT INFORMATION
  Report Type: Spontaneous
  Country: GB (occurrence: None)
  Receive Date: 20150223
  Receipt Date: 20150223
  Transmission Date: 20150721
  Serious: Yes (Hospitalization)
  Sender: FDA-Public Use
  Company Number: CL-613-2015

PATIENT
  Age: 66 Year
  Sex: Male
  Weight: 85 kg

DRUGS (5)
  1. FLUCONAZOLE. [Concomitant]
     Active Substance: FLUCONAZOLE
  2. CIPROFLOXACIN UNK [Suspect]
     Active Substance: CIPROFLOXACIN
     Indication: ENDOCARDITIS
     Route: 042
     Dates: start: 20150201, end: 20150201
  3. ASPIRIN. [Concomitant]
     Active Substance: ASPIRIN
  4. BISOPROLOL [Concomitant]
     Active Substance: BISOPROLOL
  5. RANITIDINE [Concomitant]
     Active Substance: RANITIDINE\RANITIDINE HYDROCHLORIDE

REACTIONS (2)
  - Drug reaction with eosinophilia and systemic symptoms [None]
  - Acute generalised exanthematous pustulosis [None]

NARRATIVE: CASE EVENT DATE: 20150201
